FAERS Safety Report 15791914 (Version 1)
Quarter: 2019Q1

REPORT INFORMATION
  Report Type: Spontaneous
  Country: US (occurrence: US)
  Receive Date: 20190106
  Receipt Date: 20190106
  Transmission Date: 20190417
  Serious: No
  Sender: FDA-Public Use
  Company Number: US-JNJFOC-20181223099

PATIENT
  Age: 14 Year
  Sex: Female

DRUGS (2)
  1. IMODIUM A-D [Suspect]
     Active Substance: LOPERAMIDE HYDROCHLORIDE
     Indication: MUSCLE SPASMS
     Dosage: 1 CAPLET
     Route: 048
     Dates: start: 20181217, end: 20181217
  2. IMODIUM A-D [Suspect]
     Active Substance: LOPERAMIDE HYDROCHLORIDE
     Indication: ABDOMINAL DISTENSION
     Dosage: 1 CAPLET
     Route: 048
     Dates: start: 20181217, end: 20181217

REACTIONS (1)
  - Drug ineffective [Unknown]
